FAERS Safety Report 9858538 (Version 4)
Quarter: 2014Q1

REPORT INFORMATION
  Report Type: Report from Study
  Country: FR (occurrence: FR)
  Receive Date: 20140131
  Receipt Date: 20140313
  Transmission Date: 20141002
  Serious: Yes (Hospitalization)
  Sender: FDA-Public Use
  Company Number: FR-SA-2014SA011191

PATIENT
  Age: 73 Year
  Sex: Male
  Weight: 82 kg

DRUGS (4)
  1. ELIGARD [Suspect]
     Indication: PROSTATE CANCER
     Dosage: DOSE: 45 UNITS NOT SPECIFIED
     Route: 058
     Dates: start: 20130717
  2. LERCAN [Concomitant]
     Indication: HYPERTENSION
  3. HYPERIUM [Concomitant]
     Indication: HYPERTENSION
  4. COTAREG [Concomitant]
     Indication: HYPERTENSION
     Dosage: DOSE: 12.5 MG/160 MG

REACTIONS (1)
  - Psoas abscess [Recovered/Resolved]
